FAERS Safety Report 8723619 (Version 2)
Quarter: 2013Q2

REPORT INFORMATION
  Report Type: Report from Study
  Country: JP (occurrence: JP)
  Receive Date: 20120815
  Receipt Date: 20130429
  Transmission Date: 20140414
  Serious: Yes (Hospitalization)
  Sender: FDA-Public Use
  Company Number: JP-009507513-1208JPN004861

PATIENT
  Age: 68 Year
  Sex: Male
  Weight: 59 kg

DRUGS (15)
  1. PEGINTRON [Suspect]
     Indication: CHRONIC HEPATITIS C
     Dosage: 80 MICROGRAM, QW
     Route: 058
     Dates: start: 20120605
  2. PEGINTRON [Suspect]
     Dosage: 40 MICROGRAM, QW
     Route: 058
     Dates: start: 20120612, end: 20120702
  3. PEGINTRON [Suspect]
     Dosage: 50 MICROGRAM, QW
     Route: 058
     Dates: start: 20120703, end: 20120717
  4. PEGINTRON [Suspect]
     Dosage: 60 MICROGRAM, QW
     Route: 058
     Dates: start: 20120718
  5. REBETOL [Suspect]
     Indication: CHRONIC HEPATITIS C
     Dosage: 600 MG, DAILY
     Route: 048
     Dates: start: 20120605, end: 20120619
  6. REBETOL [Suspect]
     Dosage: 400 MG, DAILY
     Route: 048
     Dates: start: 20120620
  7. TELAVIC [Suspect]
     Indication: CHRONIC HEPATITIS C
     Dosage: 2250 MG, DAILY
     Route: 048
     Dates: start: 20120605, end: 20120612
  8. TELAVIC [Suspect]
     Dosage: 500 MG, DAILY
     Route: 048
     Dates: start: 20120620, end: 20120724
  9. TELAVIC [Suspect]
     Dosage: 1000 MG, DAILY
     Route: 048
     Dates: start: 20120725, end: 20120728
  10. REZALTAS [Concomitant]
     Indication: HYPERTENSION
     Dosage: 1 DF, QD
     Route: 048
  11. JANUVIA TABLETS 50MG [Concomitant]
     Indication: DIABETES MELLITUS
     Dosage: 50 MG, DAILY
     Route: 048
  12. ALLEGRA [Concomitant]
     Indication: PRURITUS
     Dosage: 120 MG, DAILY
     Route: 048
  13. MARZULENE [Concomitant]
     Indication: GASTRITIS
     Dosage: 1.5 G, DAILY
     Route: 048
  14. PARIET [Concomitant]
     Indication: GASTRIC ULCER
     Dosage: 20 MG, DAILY
     Route: 048
  15. RESTAMIN [Concomitant]
     Dosage: UNK
     Route: 061
     Dates: start: 20120731

REACTIONS (3)
  - Toxic skin eruption [Recovered/Resolved]
  - Platelet count decreased [None]
  - Anaemia [None]
